FAERS Safety Report 21020160 (Version 1)
Quarter: 2022Q2

REPORT INFORMATION
  Report Type: Spontaneous
  Country: US (occurrence: US)
  Receive Date: 20220628
  Receipt Date: 20220628
  Transmission Date: 20220721
  Serious: No
  Sender: FDA-Public Use
  Company Number: US-JNJFOC-20220631239

PATIENT
  Sex: Male

DRUGS (1)
  1. BALVERSA [Suspect]
     Active Substance: ERDAFITINIB
     Indication: Product used for unknown indication
     Route: 065

REACTIONS (16)
  - Adverse drug reaction [Unknown]
  - Onychomadesis [Unknown]
  - Nail discolouration [Unknown]
  - Onychomycosis [Unknown]
  - Nail disorder [Unknown]
  - Nasal congestion [Unknown]
  - Mucosal haemorrhage [Unknown]
  - Insomnia [Unknown]
  - Sinus congestion [Unknown]
  - Metamorphopsia [Unknown]
  - Diarrhoea [Unknown]
  - Constipation [Unknown]
  - Heat stroke [Unknown]
  - Fatigue [Unknown]
  - Madarosis [Unknown]
  - Alopecia [Unknown]
